FAERS Safety Report 12650901 (Version 1)
Quarter: 2016Q3

REPORT INFORMATION
  Report Type: Spontaneous
  Country: US (occurrence: None)
  Receive Date: 20160812
  Receipt Date: 20160812
  Transmission Date: 20161109
  Serious: Yes (Disabling)
  Sender: FDA-Public Use
  Company Number: None

PATIENT
  Age: 60 Year
  Sex: Male
  Weight: 122.47 kg

DRUGS (3)
  1. ENBREL [Suspect]
     Active Substance: ETANERCEPT
     Indication: PSORIATIC ARTHROPATHY
     Dosage: ONCE PER WEEK7/ INTO THE MUSCLE
     Route: 030
     Dates: start: 20160729, end: 20160811
  2. DICLORFINAC [Concomitant]
  3. ALEVE [Concomitant]
     Active Substance: NAPROXEN SODIUM

REACTIONS (2)
  - Musculoskeletal stiffness [None]
  - Peroneal nerve palsy [None]

NARRATIVE: CASE EVENT DATE: 20160805
